FAERS Safety Report 18522848 (Version 1)
Quarter: 2020Q4

REPORT INFORMATION
  Report Type: Spontaneous
  Country: US (occurrence: US)
  Receive Date: 20201119
  Receipt Date: 20201119
  Transmission Date: 20210114
  Serious: No
  Sender: FDA-Public Use
  Company Number: US-NOVOPROD-753771

PATIENT
  Age: 69 Year
  Sex: Female

DRUGS (1)
  1. INSULIN ASPART PROTAMINE AND INSULIN ASPART [Suspect]
     Active Substance: INSULIN ASPART
     Indication: TYPE 2 DIABETES MELLITUS
     Dosage: 20 IU, QD (AT NIGHT)
     Route: 058
     Dates: start: 20200903, end: 20200920

REACTIONS (17)
  - Headache [Unknown]
  - Nervousness [Not Recovered/Not Resolved]
  - Increased appetite [Not Recovered/Not Resolved]
  - Bone pain [Not Recovered/Not Resolved]
  - Memory impairment [Not Recovered/Not Resolved]
  - Disturbance in attention [Not Recovered/Not Resolved]
  - Neck pain [Not Recovered/Not Resolved]
  - Condition aggravated [Not Recovered/Not Resolved]
  - Blood glucose decreased [Recovered/Resolved]
  - Blood glucose decreased [Recovered/Resolved]
  - Malaise [Not Recovered/Not Resolved]
  - Blood glucose increased [Recovered/Resolved]
  - Asthma [Not Recovered/Not Resolved]
  - Nausea [Unknown]
  - Visual impairment [Not Recovered/Not Resolved]
  - Confusional state [Not Recovered/Not Resolved]
  - Decreased appetite [Unknown]

NARRATIVE: CASE EVENT DATE: 202009
